FAERS Safety Report 16357532 (Version 1)
Quarter: 2019Q2

REPORT INFORMATION
  Report Type: Spontaneous
  Country: US (occurrence: US)
  Receive Date: 20190527
  Receipt Date: 20190527
  Transmission Date: 20190711
  Serious: Yes (Other)
  Sender: FDA-Public Use
  Company Number: US-CURIUM PHARMACEUTICALS-198900019

PATIENT
  Age: 27 Year
  Sex: Male

DRUGS (1)
  1. ULTRA-TECHNEKOW V4 [Suspect]
     Active Substance: TECHNETIUM TC-99M SODIUM PERTECHNETATE
     Indication: LIVER SCAN
     Route: 051
     Dates: start: 19890731, end: 19890731

REACTIONS (3)
  - Loss of consciousness [Recovered/Resolved]
  - Pruritus [Unknown]
  - Unresponsive to stimuli [Recovered/Resolved]

NARRATIVE: CASE EVENT DATE: 19890731
